FAERS Safety Report 5106349-1 (Version None)
Quarter: 2006Q3

REPORT INFORMATION
  Report Type: 
  Country: None (occurrence: None)
  Receive Date: 20060731
  Receipt Date: 20060420
  Transmission Date: 20061208
  Serious: Yes (Other)
  Sender: FDA-Public Use
  Company Number: US-JNJFOC-20060404964

PATIENT
  Age: 21 Year
  Sex: Male
  Weight: 121.1104 kg

DRUGS (2)
  1. RISPERDAL [Suspect]
     Indication: AUTISM
     Dosage: 2 MG, 3 IN 1 DAY, ORAL
     Route: 048
     Dates: start: 19960101
  2. LAMICTAL [Suspect]
     Indication: CONVULSION
     Dosage: 75 MG , 2 IN 1 DAY, ORAL
     Route: 048
     Dates: start: 20051201

REACTIONS (1)
  - CONVULSION [None]
